FAERS Safety Report 12418367 (Version 1)
Quarter: 2016Q2

REPORT INFORMATION
  Report Type: Spontaneous
  Country: FR (occurrence: FR)
  Receive Date: 20160531
  Receipt Date: 20160531
  Transmission Date: 20160815
  Serious: Yes (Other)
  Sender: FDA-Public Use
  Company Number: FR-009507513-1605FRA013918

PATIENT
  Age: 58 Year
  Sex: Male

DRUGS (2)
  1. JANUVIA [Suspect]
     Active Substance: SITAGLIPTIN PHOSPHATE
     Indication: DIABETES MELLITUS
     Dosage: UNK
     Route: 048
     Dates: start: 2011
  2. ALYOSTAL BEE VENOM [Suspect]
     Active Substance: APIS MELLIFERA VENOM
     Indication: IMMUNE TOLERANCE INDUCTION
     Dosage: MONTHLY INJECTION
     Route: 058
     Dates: start: 201110

REACTIONS (1)
  - Scleroderma [Not Recovered/Not Resolved]

NARRATIVE: CASE EVENT DATE: 201506
